FAERS Safety Report 10238377 (Version 1)
Quarter: 2014Q2

REPORT INFORMATION
  Report Type: Spontaneous
  Country: IT (occurrence: IT)
  Receive Date: 20140616
  Receipt Date: 20140616
  Transmission Date: 20141212
  Serious: Yes (Hospitalization)
  Sender: FDA-Public Use
  Company Number: IT-BAYER-2014-084479

PATIENT
  Age: 82 Year
  Sex: Male

DRUGS (2)
  1. CIPROXIN 500 MG FILM-COATED TABLETS [Suspect]
     Dosage: 1 DF, ONCE
     Route: 048
     Dates: start: 20140525, end: 20140525
  2. LOPRESOR [Concomitant]

REACTIONS (4)
  - Drug hypersensitivity [Recovering/Resolving]
  - Haematuria [Recovering/Resolving]
  - Skin warm [Recovering/Resolving]
  - Hyperaemia [Recovering/Resolving]
